FAERS Safety Report 9423442 (Version 1)
Quarter: 2013Q3

REPORT INFORMATION
  Report Type: Spontaneous
  Country: US (occurrence: US)
  Receive Date: 20130726
  Receipt Date: 20130726
  Transmission Date: 20140515
  Serious: No
  Sender: FDA-Public Use
  Company Number: US-GALDERMA-US12415616

PATIENT
  Age: 17 Year
  Sex: Female
  Weight: 57 kg

DRUGS (4)
  1. DIFFERIN (ADAPALENE) GEL, 0.3% [Suspect]
     Indication: ACNE
     Route: 061
     Dates: start: 20121108, end: 20121110
  2. PROACTIV SKIN CARE SYSTEM [Concomitant]
     Indication: THERAPEUTIC SKIN CARE TOPICAL
     Route: 061
  3. PROACTIV SKIN CARE SYSTEM [Concomitant]
     Indication: ACNE
  4. DOXYCYCLINE [Concomitant]
     Route: 048
     Dates: start: 20121102

REACTIONS (7)
  - Skin irritation [Recovered/Resolved]
  - Skin discomfort [Recovered/Resolved]
  - Sunburn [Recovered/Resolved]
  - Acne [Recovered/Resolved]
  - Erythema [Recovered/Resolved]
  - Skin exfoliation [Recovered/Resolved]
  - Drug ineffective [Recovered/Resolved]
